FAERS Safety Report 11727890 (Version 1)
Quarter: 2015Q4

REPORT INFORMATION
  Report Type: Spontaneous
  Country: US (occurrence: US)
  Receive Date: 20151110
  Receipt Date: 20151110
  Transmission Date: 20160304
  Serious: No
  Sender: FDA-Public Use
  Company Number: US-ELI_LILLY_AND_COMPANY-US201111006364

PATIENT
  Age: 65 Year
  Sex: Female

DRUGS (1)
  1. FORTEO [Suspect]
     Active Substance: TERIPARATIDE
     Indication: OSTEOPOROSIS
     Dosage: 20 UG, QD
     Route: 065

REACTIONS (19)
  - Rhinorrhoea [Unknown]
  - Musculoskeletal chest pain [Recovered/Resolved]
  - Muscle disorder [Unknown]
  - Headache [Recovered/Resolved]
  - Arthralgia [Recovering/Resolving]
  - Aneurysm [Unknown]
  - Nausea [Unknown]
  - Swelling [Unknown]
  - Neck pain [Unknown]
  - Pain [Not Recovered/Not Resolved]
  - Swelling face [Recovering/Resolving]
  - Injection site bruising [Recovered/Resolved]
  - Arthralgia [Recovered/Resolved]
  - Erythema [Recovered/Resolved]
  - Skin discolouration [Unknown]
  - Increased upper airway secretion [Unknown]
  - Burning sensation [Recovering/Resolving]
  - Dizziness postural [Unknown]
  - Cough [Not Recovered/Not Resolved]

NARRATIVE: CASE EVENT DATE: 201111
